FAERS Safety Report 16764442 (Version 1)
Quarter: 2019Q3

REPORT INFORMATION
  Report Type: Spontaneous
  Country: US (occurrence: US)
  Receive Date: 20190712
  Receipt Date: 20190712
  Transmission Date: 20191005
  Serious: Yes (Other)
  Sender: FDA-Public Use
  Company Number: None

PATIENT
  Age: 34 Year
  Sex: Male
  Weight: 99.79 kg

DRUGS (1)
  1. SUBOXONE [Suspect]
     Active Substance: BUPRENORPHINE HYDROCHLORIDE\NALOXONE HYDROCHLORIDE
     Indication: DRUG USE DISORDER
     Dosage: ?          OTHER STRENGTH:8MG/2MG;QUANTITY:8MG/2MG;?
     Route: 060
     Dates: start: 20190711, end: 20190711

REACTIONS (6)
  - Hyperhidrosis [None]
  - Flushing [None]
  - Chest discomfort [None]
  - Dyspnoea [None]
  - Heart rate increased [None]
  - Drug hypersensitivity [None]

NARRATIVE: CASE EVENT DATE: 20190711
